FAERS Safety Report 4557928-1 (Version None)
Quarter: 2005Q1

REPORT INFORMATION
  Report Type: 
  Country: None (occurrence: None)
  Receive Date: 20050121
  Receipt Date: 20040202
  Transmission Date: 20050727
  Serious: No
  Sender: FDA-Public Use
  Company Number: US-BRISTOL-MYERS SQUIBB COMPANY-12497749

PATIENT
  Age: 40 Year
  Sex: Female

DRUGS (16)
  1. SERZONE [Suspect]
     Indication: DEPRESSION
     Dates: start: 19990215, end: 20020301
  2. DEPAKOTE [Concomitant]
  3. REGLAN [Concomitant]
  4. SINGULAIR [Concomitant]
     Dosage: AT BEDTIME.
     Route: 048
  5. NEXIUM [Concomitant]
     Route: 048
  6. HYDROXYZINE [Concomitant]
  7. IMIPRAM TAB [Concomitant]
  8. ADVAIR DISKUS 100/50 [Concomitant]
  9. CROMOLYN SODIUM [Concomitant]
     Dosage: DOSE VALUE:  20 MG/ML
  10. ALBUTEROL [Concomitant]
  11. QUESTRAN [Concomitant]
     Indication: DIARRHOEA
  12. ASPIRIN [Concomitant]
  13. TOPROL-XL [Concomitant]
  14. PREVACID [Concomitant]
  15. NEURONTIN [Concomitant]
  16. ALLEGRA [Concomitant]

REACTIONS (2)
  - ALANINE AMINOTRANSFERASE INCREASED [None]
  - ASPARTATE AMINOTRANSFERASE INCREASED [None]
